FAERS Safety Report 20080843 (Version 2)
Quarter: 2021Q4

REPORT INFORMATION
  Report Type: Spontaneous
  Country: GB (occurrence: GB)
  Receive Date: 20211117
  Receipt Date: 20211216
  Transmission Date: 20220303
  Serious: Yes (Hospitalization)
  Sender: FDA-Public Use
  Company Number: GB-MYLANLABS-2021M1079721

PATIENT
  Age: 72 Year
  Sex: Male
  Weight: 103 kg

DRUGS (2)
  1. CLOZARIL [Suspect]
     Active Substance: CLOZAPINE
     Indication: Schizophrenia
     Dosage: 75 MILLIGRAM
     Route: 048
     Dates: start: 20130219, end: 20211102
  2. CLOZARIL [Suspect]
     Active Substance: CLOZAPINE
     Dosage: 175 MILLIGRAM
     Route: 048
     Dates: start: 20130219, end: 20211102

REACTIONS (4)
  - Oesophageal mass [Unknown]
  - Oesophageal carcinoma [Unknown]
  - Malaise [Unknown]
  - Vomiting [Recovered/Resolved]

NARRATIVE: CASE EVENT DATE: 20211002
